FAERS Safety Report 12878870 (Version 2)
Quarter: 2016Q4

REPORT INFORMATION
  Report Type: Spontaneous
  Country: US (occurrence: US)
  Receive Date: 20161024
  Receipt Date: 20161110
  Transmission Date: 20170207
  Serious: No
  Sender: FDA-Public Use
  Company Number: US-CELGENEUS-USA-2016102718

PATIENT
  Age: 49 Year
  Sex: Female

DRUGS (5)
  1. THALOMID [Suspect]
     Active Substance: THALIDOMIDE
     Indication: ROSAI-DORFMAN SYNDROME
     Route: 048
  2. THALOMID [Suspect]
     Active Substance: THALIDOMIDE
     Route: 048
  3. FLUOCINONIDE. [Concomitant]
     Active Substance: FLUOCINONIDE
     Indication: ROSAI-DORFMAN SYNDROME
     Route: 061
  4. TRIAMCINOLONE [Concomitant]
     Active Substance: TRIAMCINOLONE
     Indication: ROSAI-DORFMAN SYNDROME
     Dosage: 20 MG/ML
     Route: 050
  5. METHOTREXATE. [Concomitant]
     Active Substance: METHOTREXATE
     Indication: ROSAI-DORFMAN SYNDROME
     Route: 065

REACTIONS (3)
  - Off label use [Unknown]
  - Fatigue [Unknown]
  - Hypogeusia [Unknown]
